FAERS Safety Report 10956384 (Version 1)
Quarter: 2015Q1

REPORT INFORMATION
  Report Type: Spontaneous
  Country: US (occurrence: None)
  Receive Date: 20150325
  Receipt Date: 20150325
  Transmission Date: 20150721
  Serious: Yes (Life-Threatening, Hospitalization)
  Sender: FDA-Public Use
  Company Number: None

PATIENT
  Age: 89 Year
  Sex: Female
  Weight: 65 kg

DRUGS (23)
  1. SKIN PROTECTANTS, MISC. (BAZA PROTECT EX) [Concomitant]
  2. NEOMYCIN/POLMYXIN B/BACITRACIN (TRIPLE ANTIBIOTIC) [Concomitant]
  3. SENNA (SENNA-GEN) [Concomitant]
  4. SIMVASTATIN (ZOCOR) [Concomitant]
  5. INSULIN ASPART (NOVOLOG FLEXPEN) [Concomitant]
  6. DIGOXIN (LANOXIN) [Concomitant]
  7. OMEPRAZOLE. [Concomitant]
     Active Substance: OMEPRAZOLE
  8. WARFARIN 5 MG [Suspect]
     Active Substance: WARFARIN
     Indication: ATRIAL FIBRILLATION
     Dosage: 1
     Route: 048
  9. LOPERAMIDE (IMODIUM) [Concomitant]
  10. MAGNESIUM HYDROXIDE (MILK OF MAGNESIA) [Concomitant]
  11. MIRALAX [Concomitant]
     Active Substance: POLYETHYLENE GLYCOL 3350
  12. TYLENOL [Concomitant]
     Active Substance: ACETAMINOPHEN
  13. RISPERIDONE. [Concomitant]
     Active Substance: RISPERIDONE
  14. ARTIFICIAL TEARS 0.1-0.3 % SOLN [Concomitant]
  15. ALLOPURINOL (ZYLOPRIM) [Concomitant]
  16. CALCIUM CARBONATE-VITAMIN D (CALTRATE+D) [Concomitant]
  17. VITAMIN - THERAPEUTIC MULTIVITAMINS W/MINERALS (CENTRUM SILVER, THERA-M) [Concomitant]
  18. CRANBERRY (CRANBERRY FRUIT) [Concomitant]
  19. METOPROLOL (TOPROL-XL) [Concomitant]
  20. MAGNESIUM OXIDE. [Concomitant]
     Active Substance: MAGNESIUM OXIDE
  21. LEVOTHYROXINE (SYNTHROID, LEVOTHROID) [Concomitant]
  22. POTASSIUM [Concomitant]
     Active Substance: POTASSIUM
  23. SERTRALINE [Concomitant]
     Active Substance: SERTRALINE HYDROCHLORIDE

REACTIONS (4)
  - Renal failure [None]
  - Urinary tract infection [None]
  - Blood urine present [None]
  - International normalised ratio increased [None]

NARRATIVE: CASE EVENT DATE: 20141025
